FAERS Safety Report 9437146 (Version 1)
Quarter: 2013Q3

REPORT INFORMATION
  Report Type: Spontaneous
  Country: US (occurrence: US)
  Receive Date: 20130802
  Receipt Date: 20130802
  Transmission Date: 20140515
  Serious: Yes (Other)
  Sender: FDA-Public Use
  Company Number: US-JNJFOC-20130716679

PATIENT
  Sex: Female

DRUGS (1)
  1. REMICADE [Suspect]
     Indication: CROHN^S DISEASE
     Route: 042
     Dates: end: 2012

REACTIONS (3)
  - Lupus-like syndrome [Recovered/Resolved]
  - Clostridium difficile infection [Not Recovered/Not Resolved]
  - Female genital tract fistula [Not Recovered/Not Resolved]
